FAERS Safety Report 8516649-0 (Version None)
Quarter: 2012Q3

REPORT INFORMATION
  Report Type: 
  Country: None (occurrence: None)
  Receive Date: 20120718
  Receipt Date: 20120712
  Transmission Date: 20120928
  Serious: Yes (Other)
  Sender: FDA-Public Use
  Company Number: TR-US-EMD SERONO, INC.-7147448

PATIENT
  Sex: Female
  Weight: 65 kg

DRUGS (6)
  1. MONOPRIL-HCT [Suspect]
     Indication: HYPERTENSION
     Route: 048
  2. SERTRALINE HYDROCHLORIDE [Suspect]
     Indication: ANTIDEPRESSANT THERAPY
     Route: 048
  3. REBIF [Suspect]
     Indication: MULTIPLE SCLEROSIS
     Route: 058
     Dates: start: 20000401
  4. ACETAMINOPHEN [Suspect]
     Indication: ANALGESIC THERAPY
     Route: 048
  5. ACETAMINOPHEN [Suspect]
     Indication: ANTIPYRESIS
  6. TOLTERODINE TARTRATE [Suspect]
     Indication: URINARY INCONTINENCE
     Route: 048

REACTIONS (3)
  - OEDEMA PERIPHERAL [None]
  - EMBOLISM [None]
  - PAIN IN EXTREMITY [None]
